FAERS Safety Report 5595693-X (Version None)
Quarter: 2008Q1

REPORT INFORMATION
  Report Type: 
  Country: None (occurrence: None)
  Receive Date: 20080118
  Receipt Date: 20080116
  Transmission Date: 20080703
  Serious: Yes (Other)
  Sender: FDA-Public Use
  Company Number: PHNU2008DE00591

PATIENT
  Sex: Male

DRUGS (1)
  1. RASILEZ [Suspect]
     Dosage: 300 MG/DAY
     Route: 048
     Dates: start: 20071213, end: 20071217

REACTIONS (5)
  - ANURIA [None]
  - BLOOD PRESSURE INADEQUATELY CONTROLLED [None]
  - FAECES DISCOLOURED [None]
  - NAUSEA [None]
  - TACHYCARDIA [None]
